FAERS Safety Report 7270121-7 (Version None)
Quarter: 2011Q1

REPORT INFORMATION
  Report Type: 
  Country: None (occurrence: None)
  Receive Date: 20110202
  Receipt Date: 20110120
  Transmission Date: 20110831
  Serious: Yes (Death, Other)
  Sender: FDA-Public Use
  Company Number: US-CELGENEUS-163-21880-10092416

PATIENT
  Sex: Male

DRUGS (2)
  1. VELCADE [Concomitant]
     Route: 048
     Dates: start: 20100507, end: 20100801
  2. REVLIMID [Suspect]
     Indication: MULTIPLE MYELOMA
     Route: 048
     Dates: start: 20100520, end: 20100801

REACTIONS (2)
  - LEUKAEMIA PLASMACYTIC [None]
  - MULTIPLE MYELOMA [None]
